FAERS Safety Report 8880275 (Version 1)
Quarter: 2012Q4

REPORT INFORMATION
  Report Type: 
  Country: CH (occurrence: CH)
  Receive Date: 20121031
  Receipt Date: 20121031
  Transmission Date: 20130627
  Serious: Yes (Other)
  Sender: FDA-Public Use
  Company Number: PHHY2012CH097027

PATIENT

DRUGS (2)
  1. METO ZEROK [Suspect]
     Indication: HYPERTROPHIC CARDIOMYOPATHY
     Dosage: 50 mg, UNK
     Route: 048
     Dates: start: 2012
  2. PAROXETINE [Interacting]
     Indication: DEPRESSION
     Route: 048

REACTIONS (3)
  - Suicidal ideation [Recovering/Resolving]
  - Depression [Recovering/Resolving]
  - Drug interaction [Unknown]
